FAERS Safety Report 5959246-3 (Version None)
Quarter: 2008Q4

REPORT INFORMATION
  Report Type: 
  Country: None (occurrence: None)
  Receive Date: 20081120
  Receipt Date: 20080922
  Transmission Date: 20090506
  Serious: No
  Sender: FDA-Public Use
  Company Number: A0749652A

PATIENT
  Age: 53 Year
  Sex: Male

DRUGS (3)
  1. BUPROPION HYDROCHLORIDE [Suspect]
     Indication: DEPRESSION
     Route: 048
  2. CYMBALTA [Suspect]
     Indication: DEPRESSION
     Route: 048
  3. BUPROPION HYDROCHLORIDE [Suspect]
     Route: 048

REACTIONS (5)
  - APATHY [None]
  - ASTHENIA [None]
  - DISINHIBITION [None]
  - DRUG INEFFECTIVE [None]
  - SEXUAL DYSFUNCTION [None]
